FAERS Safety Report 6505189-6 (Version None)
Quarter: 2009Q4

REPORT INFORMATION
  Report Type: 
  Country: None (occurrence: None)
  Receive Date: 20091218
  Receipt Date: 20091209
  Transmission Date: 20100525
  Serious: Yes (Other)
  Sender: FDA-Public Use
  Company Number: JP-JNJFOC-20091203388

PATIENT
  Sex: Male

DRUGS (1)
  1. LOPEMIN [Suspect]
     Indication: HAEMATOCHEZIA
     Route: 048

REACTIONS (3)
  - CONDITION AGGRAVATED [None]
  - CONTRAINDICATION TO MEDICAL TREATMENT [None]
  - RENAL FAILURE ACUTE [None]
